FAERS Safety Report 7269542-8 (Version None)
Quarter: 2011Q1

REPORT INFORMATION
  Report Type: 
  Country: None (occurrence: None)
  Receive Date: 20110125
  Receipt Date: 20110112
  Transmission Date: 20110831
  Serious: Yes (Other)
  Sender: FDA-Public Use
  Company Number: 024831

PATIENT
  Age: 22 Year
  Sex: Female

DRUGS (5)
  1. KEPPRA [Suspect]
  2. THYROXIN [Concomitant]
  3. CYCLIZINE [Concomitant]
  4. LACOSAMIDE [Suspect]
     Dosage: 200 MG BID
  5. CARBAMAZEPINE [Concomitant]

REACTIONS (4)
  - GRAND MAL CONVULSION [None]
  - PRODUCT QUALITY ISSUE [None]
  - FATIGUE [None]
  - ANXIETY [None]
